FAERS Safety Report 17678543 (Version 2)
Quarter: 2020Q2

REPORT INFORMATION
  Report Type: Report from Study
  Country: US (occurrence: US)
  Receive Date: 20200417
  Receipt Date: 20200428
  Transmission Date: 20200714
  Serious: Yes (Hospitalization)
  Sender: FDA-Public Use
  Company Number: US-ACTELION-A-NJ2020-202517

PATIENT
  Age: 87 Year
  Sex: Female

DRUGS (1)
  1. OPSUMIT [Suspect]
     Active Substance: MACITENTAN
     Indication: PRODUCT USED FOR UNKNOWN INDICATION
     Dosage: 10 MG, QD
     Route: 048
     Dates: start: 20200204

REACTIONS (5)
  - Peripheral swelling [Unknown]
  - Hospitalisation [Unknown]
  - Rhinorrhoea [Unknown]
  - Cough [Unknown]
  - Hospice care [Unknown]

NARRATIVE: CASE EVENT DATE: 20200411
